FAERS Safety Report 5514916-6 (Version None)
Quarter: 2007Q4

REPORT INFORMATION
  Report Type: 
  Country: None (occurrence: None)
  Receive Date: 20071113
  Receipt Date: 20061103
  Transmission Date: 20080405
  Serious: No
  Sender: FDA-Public Use
  Company Number: A0622294A

PATIENT
  Age: 54 Year
  Sex: Female

DRUGS (7)
  1. COREG [Suspect]
     Dosage: 3.125MG PER DAY
     Route: 048
     Dates: start: 20060601, end: 20061101
  2. PRINIVIL [Concomitant]
  3. DIGOXIN [Concomitant]
  4. ALDACTONE [Concomitant]
  5. AMBIEN [Concomitant]
  6. XANAX [Concomitant]
  7. DEMADEX [Concomitant]

REACTIONS (2)
  - ASTHENIA [None]
  - DIZZINESS [None]
